FAERS Safety Report 10193679 (Version 1)
Quarter: 2014Q2

REPORT INFORMATION
  Report Type: Spontaneous
  Country: US (occurrence: US)
  Receive Date: 20140524
  Receipt Date: 20140524
  Transmission Date: 20141212
  Serious: No
  Sender: FDA-Public Use
  Company Number: US-SA-2013SA136182

PATIENT
  Age: 36 Year
  Sex: Male
  Weight: 127 kg

DRUGS (5)
  1. LANTUS SOLOSTAR [Suspect]
     Indication: DIABETES MELLITUS
     Dosage: DOSE:32 UNIT(S)
     Route: 058
     Dates: start: 201002
  2. SOLOSTAR [Concomitant]
     Indication: DIABETES MELLITUS
     Dates: start: 201002
  3. TRICOR [Concomitant]
     Indication: BLOOD CHOLESTEROL
     Route: 065
     Dates: start: 201106
  4. ZOLOFT [Concomitant]
     Indication: MALAISE
     Route: 065
     Dates: start: 201002
  5. NOVOLOG [Concomitant]
     Indication: DIABETES MELLITUS
     Dosage: DOSE:15 UNIT(S)
     Route: 065
     Dates: start: 201002

REACTIONS (1)
  - Malaise [Unknown]
